FAERS Safety Report 13293429 (Version 1)
Quarter: 2017Q1

REPORT INFORMATION
  Report Type: Spontaneous
  Country: NL (occurrence: NL)
  Receive Date: 20170303
  Receipt Date: 20170303
  Transmission Date: 20170428
  Serious: Yes (Death)
  Sender: FDA-Public Use
  Company Number: NL-MYLANLABS-2017M1013252

PATIENT

DRUGS (4)
  1. OMEPRAZOL MYLAN 20 MG, MAAGSAPRESISTENTE CAPSULES [Suspect]
     Active Substance: OMEPRAZOLE
     Indication: DYSPEPSIA
     Dosage: 1 KEER PER DAG 1 STUK(S)
     Route: 048
     Dates: start: 20070910
  2. METFORMINE HCL [Concomitant]
     Active Substance: METFORMIN HYDROCHLORIDE
     Dosage: 1DD1
     Route: 048
  3. CLOPIDOGREL [Interacting]
     Active Substance: CLOPIDOGREL BISULFATE
     Indication: TRANSIENT ISCHAEMIC ATTACK
     Dosage: 1 KEER PER DAG 1 STUK(S)
     Route: 048
     Dates: start: 20170128
  4. OXYCODON HCL SANDOZ [Concomitant]
     Dosage: 2DD2
     Route: 048

REACTIONS (2)
  - Cerebrovascular accident [Fatal]
  - Drug interaction [Unknown]

NARRATIVE: CASE EVENT DATE: 201701
